FAERS Safety Report 24796471 (Version 1)
Quarter: 2025Q1

REPORT INFORMATION
  Report Type: Spontaneous
  Country: ES (occurrence: ES)
  Receive Date: 20250101
  Receipt Date: 20250101
  Transmission Date: 20250408
  Serious: Yes (Hospitalization)
  Sender: AUROBINDO
  Company Number: ES-GLENMARK PHARMACEUTICALS-2024GMK096145

PATIENT
  Age: 32 Year
  Sex: Male

DRUGS (2)
  1. EMTRICITABINE\TENOFOVIR [Suspect]
     Active Substance: EMTRICITABINE\TENOFOVIR
     Indication: Prophylaxis against HIV infection
     Route: 065
  2. EMTRICITABINE\TENOFOVIR [Suspect]
     Active Substance: EMTRICITABINE\TENOFOVIR
     Dosage: UNK, ONCE A DAY
     Route: 065

REACTIONS (3)
  - Cluster headache [Recovered/Resolved]
  - Paraesthesia [Recovered/Resolved]
  - Ear pain [Recovered/Resolved]
